FAERS Safety Report 5133720-4 (Version None)
Quarter: 2006Q4

REPORT INFORMATION
  Report Type: 
  Country: None (occurrence: None)
  Receive Date: 20061024
  Receipt Date: 20060630
  Transmission Date: 20070319
  Serious: Yes (Hospitalization, Other)
  Sender: FDA-Public Use
  Company Number: US-AVENTIS-200615649US

PATIENT
  Age: 69 Year
  Sex: Male

DRUGS (8)
  1. LANTUS [Suspect]
     Indication: DIABETES MELLITUS NON-INSULIN-DEPENDENT
     Dates: start: 20060101
  2. TOPROL-XL [Concomitant]
  3. ISOSORBIDE [Concomitant]
     Dosage: DOSE: UNK
  4. LASIX [Concomitant]
     Dosage: DOSE: UNK
  5. GLUCOPHAGE [Concomitant]
     Dosage: DOSE: UNK
  6. GLUCOTROL [Concomitant]
     Dosage: DOSE: UNK
  7. AVANDIA [Concomitant]
     Dosage: DOSE: UNK
  8. NEXIUM [Concomitant]
     Dosage: DOSE: UNK

REACTIONS (5)
  - BLOOD GLUCOSE INCREASED [None]
  - CARDIAC FAILURE CONGESTIVE [None]
  - DYSPNOEA [None]
  - HYPERTENSION [None]
  - THIRST [None]
